FAERS Safety Report 9550952 (Version 1)
Quarter: 2013Q3

REPORT INFORMATION
  Report Type: Spontaneous
  Country: US (occurrence: US)
  Receive Date: 20130924
  Receipt Date: 20130924
  Transmission Date: 20140515
  Serious: No
  Sender: FDA-Public Use
  Company Number: US-SANOFI-AVENTIS-2013SA050521

PATIENT
  Age: 81 Year
  Sex: Female
  Weight: 45 kg

DRUGS (5)
  1. AUBAGIO [Suspect]
     Indication: MULTIPLE SCLEROSIS
     Route: 048
     Dates: start: 20130326, end: 20130525
  2. LOSARTAN POTASSIUM [Concomitant]
     Indication: HYPERTENSION
     Dates: start: 20130410
  3. OMEGA 3 [Concomitant]
     Indication: BLOOD CHOLESTEROL INCREASED
     Dates: start: 201302
  4. PLAVIX [Concomitant]
     Indication: CEREBROVASCULAR ACCIDENT
     Dates: start: 199808
  5. FOLIC ACID [Concomitant]
     Dates: start: 200601

REACTIONS (9)
  - Pain in extremity [Recovering/Resolving]
  - Groin pain [Recovering/Resolving]
  - Swelling [Recovering/Resolving]
  - Urinary retention [Recovering/Resolving]
  - Urine output decreased [Recovering/Resolving]
  - Gait disturbance [Not Recovered/Not Resolved]
  - Oedema peripheral [Recovering/Resolving]
  - Arthralgia [Recovering/Resolving]
  - Paraesthesia [Recovered/Resolved]
